FAERS Safety Report 16269569 (Version 2)
Quarter: 2019Q2

REPORT INFORMATION
  Report Type: Spontaneous
  Country: US (occurrence: US)
  Receive Date: 20190503
  Receipt Date: 20190625
  Transmission Date: 20190711
  Serious: No
  Sender: FDA-Public Use
  Company Number: US-PFIZER INC-2019183801

PATIENT
  Age: 72 Year
  Sex: Female

DRUGS (4)
  1. THEOPHYLLINE [Suspect]
     Active Substance: THEOPHYLLINE ANHYDROUS
     Dosage: UNK
  2. NAMENDA [Suspect]
     Active Substance: MEMANTINE HYDROCHLORIDE
     Dosage: UNK
  3. DURAGESIC [Suspect]
     Active Substance: FENTANYL
     Dosage: UNK
  4. CECLOR [Suspect]
     Active Substance: CEFACLOR
     Dosage: UNK

REACTIONS (1)
  - Drug hypersensitivity [Unknown]
